FAERS Safety Report 17435190 (Version 1)
Quarter: 2020Q1

REPORT INFORMATION
  Report Type: Spontaneous
  Country: US (occurrence: US)
  Receive Date: 20200219
  Receipt Date: 20200219
  Transmission Date: 20200409
  Serious: Yes (Other)
  Sender: FDA-Public Use
  Company Number: NVSC2020US040972

PATIENT
  Sex: Female
  Weight: 87 kg

DRUGS (1)
  1. PROMACTA [Suspect]
     Active Substance: ELTROMBOPAG OLAMINE
     Indication: IMMUNE THROMBOCYTOPENIC PURPURA
     Dosage: 75 MG, QD(VIA MOUTH)
     Route: 048
     Dates: start: 20191025

REACTIONS (1)
  - Thrombosis [Not Recovered/Not Resolved]
